FAERS Safety Report 6984734-0 (Version None)
Quarter: 2010Q3

REPORT INFORMATION
  Report Type: 
  Country: None (occurrence: None)
  Receive Date: 20100913
  Receipt Date: 20100903
  Transmission Date: 20110219
  Serious: Yes (Life-Threatening, Hospitalization)
  Sender: FDA-Public Use
  Company Number: 105579

PATIENT
  Age: 7 Year
  Sex: Male
  Weight: 24 kg

DRUGS (1)
  1. ETOPOSIDE [Suspect]
     Indication: LYMPHOHISTIOCYTOSIS
     Dosage: 150GM/M2 X 2 WEEKLY

REACTIONS (10)
  - ABDOMINAL PAIN [None]
  - COUGH [None]
  - HAEMOPTYSIS [None]
  - HYPERTENSION [None]
  - HYPOTENSION [None]
  - LEFT VENTRICULAR DYSFUNCTION [None]
  - MYOCARDIAL INFARCTION [None]
  - PULMONARY OEDEMA [None]
  - RESPIRATORY FAILURE [None]
  - TACHYPNOEA [None]
